FAERS Safety Report 4383246-0 (Version None)
Quarter: 2004Q2

REPORT INFORMATION
  Report Type: 
  Country: None (occurrence: None)
  Receive Date: 20040622
  Receipt Date: 20040622
  Transmission Date: 20050107
  Serious: Yes (Hospitalization)
  Sender: FDA-Public Use
  Company Number: None

PATIENT
  Age: 65 Year
  Sex: Male
  Weight: 77.1115 kg

DRUGS (10)
  1. KEPPRA [Suspect]
     Indication: POST LAMINECTOMY SYNDROME
     Dosage: 1500 MG BID ORAL
     Route: 048
     Dates: start: 20040603, end: 20040609
  2. MS CONTIN [Concomitant]
  3. ISOSORB [Concomitant]
  4. SYNTHROID [Concomitant]
  5. LIPITOR [Concomitant]
  6. METOPROLOL TAR [Concomitant]
  7. LISINOPRIL [Concomitant]
  8. PROTONIX [Concomitant]
  9. FLEXORIL [Concomitant]
  10. ASPIRIN [Concomitant]

REACTIONS (4)
  - ANAEMIA [None]
  - CHEST PAIN [None]
  - DYSPNOEA [None]
  - HYPERHIDROSIS [None]
